FAERS Safety Report 9498288 (Version 1)
Quarter: 2013Q3

REPORT INFORMATION
  Report Type: Spontaneous
  Country: US (occurrence: None)
  Receive Date: 20130903
  Receipt Date: 20130903
  Transmission Date: 20140515
  Serious: Yes (Hospitalization)
  Sender: FDA-Public Use
  Company Number: None

PATIENT
  Age: 61 Year
  Sex: Male
  Weight: 92.8 kg

DRUGS (1)
  1. PRASUGREL [Suspect]
     Route: 048

REACTIONS (4)
  - Injury [None]
  - Head injury [None]
  - Headache [None]
  - Road traffic accident [None]
